FAERS Safety Report 9415329 (Version 4)
Quarter: 2013Q4

REPORT INFORMATION
  Report Type: Spontaneous
  Country: US (occurrence: US)
  Receive Date: 20130723
  Receipt Date: 20131011
  Transmission Date: 20140711
  Serious: Yes (Hospitalization, Other)
  Sender: FDA-Public Use
  Company Number: US-ACTELION-A-NJ2013-85598

PATIENT
  Age: 45 Year
  Sex: Male

DRUGS (10)
  1. VELETRI [Suspect]
     Indication: PULMONARY ARTERIAL HYPERTENSION
     Dosage: 77 NG/KG, PER MIN
     Route: 041
     Dates: start: 20130522
  2. LETAIRIS [Concomitant]
     Dosage: 10 MG, QD
  3. COUMADIN [Concomitant]
  4. LASIX [Concomitant]
     Dosage: 20 MG, QD
  5. LANOXIN [Concomitant]
     Dosage: 125 MCG, QD
  6. TENORMIN [Concomitant]
     Dosage: 25 MG, QD
  7. FLOMAX [Concomitant]
     Dosage: 0.4 MG, QD
  8. ATIVAN [Concomitant]
     Dosage: 1 MG, PRN
  9. IMODIUM [Concomitant]
     Dosage: UNK, PRN
  10. CEFAZOLIN [Concomitant]
     Dosage: 2000 MG, TID
     Route: 042

REACTIONS (12)
  - Phlebitis [Recovered/Resolved]
  - Device related infection [Recovered/Resolved]
  - Staphylococcal bacteraemia [Recovered/Resolved]
  - Device occlusion [Recovered/Resolved]
  - Catheter site pain [Unknown]
  - Pyrexia [Recovered/Resolved]
  - Rash erythematous [Recovered/Resolved]
  - Device malfunction [Unknown]
  - Dyspnoea [Unknown]
  - Nausea [Unknown]
  - Hypoaesthesia oral [Unknown]
  - Confusional state [Unknown]
